FAERS Safety Report 9475792 (Version 1)
Quarter: 2013Q3

REPORT INFORMATION
  Report Type: Spontaneous
  Country: US (occurrence: None)
  Receive Date: 20130821
  Receipt Date: 20130821
  Transmission Date: 20140515
  Serious: No
  Sender: FDA-Public Use
  Company Number: GAM-137-13-US

PATIENT
  Age: 59 Year
  Sex: Female

DRUGS (10)
  1. OCTAGRAM 10% (HUMAN NORMAL IMMUNE GLOBULIN) [Suspect]
     Indication: IMMUNODEFICIENCY COMMON VARIABLE
     Dosage: 1X/WEEK
     Dates: start: 20121116, end: 20130502
  2. METFORMIN [Concomitant]
  3. GLIMEPERIDE [Concomitant]
  4. CARVEDILOL [Concomitant]
  5. FUROSEMIDE [Concomitant]
  6. SIMVASTATIN [Concomitant]
  7. VITAMIN D [Concomitant]
  8. MELOXICAM [Concomitant]
  9. FLUTICASONE [Concomitant]
  10. CONAJTED OESTROGENS AND MEDROXYPROGESTERONE [Concomitant]

REACTIONS (11)
  - Speech disorder [None]
  - Dyspnoea [None]
  - Hypertension [None]
  - Muscle spasms [None]
  - Arthropathy [None]
  - Myalgia [None]
  - Arthralgia [None]
  - Back pain [None]
  - Arthralgia [None]
  - Pain in extremity [None]
  - Infusion related reaction [None]
